FAERS Safety Report 5056825-5 (Version None)
Quarter: 2006Q2

REPORT INFORMATION
  Report Type: 
  Country: None (occurrence: None)
  Receive Date: 20060619
  Receipt Date: 20050422
  Transmission Date: 20061013
  Serious: Yes (Other)
  Sender: FDA-Public Use
  Company Number: WAES 0504USA04147

PATIENT
  Age: 66 Year
  Sex: Female

DRUGS (5)
  1. COZAAR [Suspect]
     Indication: HYPERTENSION
     Dosage: SEE IMAGE
     Route: 048
     Dates: start: 20041201, end: 20050401
  2. COZAAR [Suspect]
     Indication: HYPERTENSION
     Dosage: SEE IMAGE
     Route: 048
     Dates: start: 20020101
  3. COZAAR [Suspect]
     Indication: HYPERTENSION
     Dosage: SEE IMAGE
     Route: 048
     Dates: start: 20050401
  4. COZAAR [Suspect]
  5. [THERAPY UNSPECIFIED] [Concomitant]

REACTIONS (3)
  - BLOOD PRESSURE INCREASED [None]
  - MEDICATION ERROR [None]
  - MYOCARDIAL INFARCTION [None]
